FAERS Safety Report 5035682-7 (Version None)
Quarter: 2006Q2

REPORT INFORMATION
  Report Type: 
  Country: None (occurrence: None)
  Receive Date: 20060627
  Receipt Date: 20060621
  Transmission Date: 20061013
  Serious: Yes (Other)
  Sender: FDA-Public Use
  Company Number: US-SANOFI-SYNTHELABO-A03200604014

PATIENT
  Sex: Male

DRUGS (9)
  1. HUMALOG [Concomitant]
     Dosage: UNK
     Route: 048
  2. TRICOR [Concomitant]
     Dosage: UNK
     Route: 048
  3. FOSAMAX [Concomitant]
     Dosage: UNK
     Route: 048
  4. LASIX [Concomitant]
     Dosage: UNK
     Route: 048
  5. ASPIRIN [Concomitant]
     Dosage: UNK
     Route: 048
  6. LIPITOR [Concomitant]
     Dosage: UNK
     Route: 048
  7. TOPROL-XL [Concomitant]
     Dosage: UNK
     Route: 048
  8. PLAVIX [Suspect]
     Indication: STENT PLACEMENT
     Route: 048
     Dates: start: 20060528
  9. PLAVIX [Suspect]
     Indication: ANGIOGRAM
     Route: 048
     Dates: start: 20060528

REACTIONS (2)
  - POLYARTHRITIS [None]
  - SERUM SICKNESS [None]
